FAERS Safety Report 8761529 (Version 1)
Quarter: 2012Q4

REPORT INFORMATION
  Report Type: 
  Country: US (occurrence: US)
  Receive Date: 20120905
  Receipt Date: 20120905
  Transmission Date: 20130627
  Serious: Yes (Hospitalization)
  Sender: FDA-Public Use
  Company Number: US-AMGEN-USASP2012053964

PATIENT
  Age: 54 Year
  Sex: Female

DRUGS (1)
  1. ENBREL [Suspect]
     Indication: PRODUCT USED FOR UNKNOWN INDICATION
     Dosage: 50 mg, qwk
     Route: 058
     Dates: start: 20060101

REACTIONS (6)
  - Tooth infection [Recovered/Resolved]
  - Vitamin D deficiency [Not Recovered/Not Resolved]
  - Calcium deficiency [Not Recovered/Not Resolved]
  - Tooth extraction [Recovered/Resolved]
  - Joint swelling [Not Recovered/Not Resolved]
  - Syndactyly [Not Recovered/Not Resolved]
